FAERS Safety Report 13966616 (Version 2)
Quarter: 2017Q4

REPORT INFORMATION
  Report Type: Report from Study
  Country: None (occurrence: US)
  Receive Date: 20170914
  Receipt Date: 20171013
  Transmission Date: 20180320
  Serious: Yes (Other)
  Sender: FDA-Public Use
  Company Number: US-ABBVIE-17K-163-2095633-00

PATIENT
  Age: 48 Year
  Sex: Male
  Weight: 104.42 kg

DRUGS (6)
  1. TIZANIDINE HYDROCHLORIDE. [Concomitant]
     Active Substance: TIZANIDINE HYDROCHLORIDE
     Indication: ANKYLOSING SPONDYLITIS
  2. HUMIRA [Suspect]
     Active Substance: ADALIMUMAB
     Route: 058
     Dates: start: 201707, end: 20170825
  3. ETODOLAC. [Concomitant]
     Active Substance: ETODOLAC
     Indication: ANKYLOSING SPONDYLITIS
  4. OXYCONTIN [Concomitant]
     Active Substance: OXYCODONE HYDROCHLORIDE
     Indication: ANKYLOSING SPONDYLITIS
  5. ZALEPLON. [Concomitant]
     Active Substance: ZALEPLON
     Indication: INSOMNIA
  6. HUMIRA [Suspect]
     Active Substance: ADALIMUMAB
     Indication: ANKYLOSING SPONDYLITIS
     Route: 058
     Dates: start: 201702, end: 201707

REACTIONS (19)
  - Migraine [Not Recovered/Not Resolved]
  - Pain [Not Recovered/Not Resolved]
  - Swelling face [Unknown]
  - Arthralgia [Unknown]
  - Tendon pain [Unknown]
  - Contusion [Recovered/Resolved]
  - Arthralgia [Unknown]
  - Joint range of motion decreased [Recovered/Resolved]
  - Muscle spasms [Unknown]
  - Myopia [Not Recovered/Not Resolved]
  - Hypermetropia [Not Recovered/Not Resolved]
  - Musculoskeletal stiffness [Not Recovered/Not Resolved]
  - Drug effect incomplete [Not Recovered/Not Resolved]
  - Oral pain [Recovering/Resolving]
  - Gait disturbance [Unknown]
  - Foot deformity [Unknown]
  - Sensory disturbance [Unknown]
  - Myalgia [Not Recovered/Not Resolved]
  - Hip fracture [Recovered/Resolved]

NARRATIVE: CASE EVENT DATE: 2017
